FAERS Safety Report 5464355-1 (Version None)
Quarter: 2007Q3

REPORT INFORMATION
  Report Type: 
  Country: None (occurrence: None)
  Receive Date: 20070921
  Receipt Date: 20070910
  Transmission Date: 20080115
  Serious: Yes (Congenital Anomaly)
  Sender: FDA-Public Use
  Company Number: CA-ROCHE-517005

PATIENT
  Age: 31 Year
  Sex: Female

DRUGS (1)
  1. ACCUTANE [Suspect]
     Indication: ACNE
     Dosage: ACCUTANE DOSE REGIMEN REPORTED AS: 2 CAPSULES EVERY DAY AND 1 CAPSULE EVERY SECOND DAY.
     Route: 048

REACTIONS (1)
  - CONGENITAL HYDROCEPHALUS [None]
